FAERS Safety Report 19873818 (Version 1)
Quarter: 2021Q3

REPORT INFORMATION
  Report Type: Spontaneous
  Country: JP (occurrence: JP)
  Receive Date: 20210923
  Receipt Date: 20210923
  Transmission Date: 20211014
  Serious: Yes (Other)
  Sender: FDA-Public Use
  Company Number: JP-TEVA-2021-JP-1958050

PATIENT
  Age: 4 Decade
  Sex: Male

DRUGS (1)
  1. ARSENIC TRIOXIDE. [Suspect]
     Active Substance: ARSENIC TRIOXIDE
     Indication: ACUTE PROMYELOCYTIC LEUKAEMIA
     Dosage: .15 MG/KG DAILY;
     Route: 042

REACTIONS (2)
  - Differentiation syndrome [Unknown]
  - Acute kidney injury [Unknown]
